FAERS Safety Report 5023160-0 (Version None)
Quarter: 2006Q2

REPORT INFORMATION
  Report Type: 
  Country: None (occurrence: None)
  Receive Date: 20060428
  Receipt Date: 20060224
  Transmission Date: 20061013
  Serious: No
  Sender: FDA-Public Use
  Company Number: 012141

PATIENT
  Sex: Female

DRUGS (1)
  1. PRIALT [Suspect]
     Indication: PAIN
     Dosage: 0.25 UG, ONCE/HOUR, INTRATHECAL
     Route: 037
     Dates: start: 20050601, end: 20050801

REACTIONS (4)
  - CONFUSIONAL STATE [None]
  - COUGH [None]
  - GENERALISED OEDEMA [None]
  - HYPERSENSITIVITY [None]
